FAERS Safety Report 10272671 (Version 2)
Quarter: 2014Q3

REPORT INFORMATION
  Report Type: Report from Study
  Country: SR (occurrence: SR)
  Receive Date: 20140702
  Receipt Date: 20140714
  Transmission Date: 20150326
  Serious: Yes (Death, Other)
  Sender: FDA-Public Use
  Company Number: PHHY2014SR080850

PATIENT
  Age: 70 Year
  Weight: 62 kg

DRUGS (4)
  1. AUGMENTIN [Concomitant]
     Active Substance: AMOXICILLIN\CLAVULANATE POTASSIUM
     Dosage: 3 DF, UNK
  2. CIMETIDINE [Concomitant]
     Active Substance: CIMETIDINE
     Dosage: 3 DF, UNK
  3. METOCLOPRAMIDE. [Concomitant]
     Active Substance: METOCLOPRAMIDE
     Dosage: 3 DF, UNK
  4. GLIVEC [Suspect]
     Active Substance: IMATINIB MESYLATE
     Indication: GASTROINTESTINAL STROMAL TUMOUR
     Dosage: 400 MG, UNK
     Dates: start: 201203

REACTIONS (7)
  - Cystitis [Unknown]
  - Liver function test abnormal [Not Recovered/Not Resolved]
  - Malignant neoplasm progression [Unknown]
  - Septic shock [Fatal]
  - Pyrexia [Unknown]
  - Gastrointestinal stromal tumour [Unknown]
  - Vomiting [Unknown]

NARRATIVE: CASE EVENT DATE: 201307
